FAERS Safety Report 7782573-4 (Version None)
Quarter: 2011Q3

REPORT INFORMATION
  Report Type: 
  Country: None (occurrence: None)
  Receive Date: 20110927
  Receipt Date: 20110927
  Transmission Date: 20111222
  Serious: Yes (Life-Threatening, Disabling)
  Sender: FDA-Public Use
  Company Number: None

PATIENT
  Sex: Female
  Weight: 54.4316 kg

DRUGS (1)
  1. SEROQUEL [Suspect]
     Dosage: 1 A DAY 4-5 DAYS
     Dates: start: 20100428

REACTIONS (5)
  - DRUG HYPERSENSITIVITY [None]
  - FAECES DISCOLOURED [None]
  - FEELING HOT [None]
  - HEADACHE [None]
  - MEMORY IMPAIRMENT [None]
